FAERS Safety Report 10311219 (Version 1)
Quarter: 2014Q3

REPORT INFORMATION
  Report Type: Spontaneous
  Country: US (occurrence: None)
  Receive Date: 20140716
  Receipt Date: 20140716
  Transmission Date: 20150326
  Serious: Yes (Other)
  Sender: FDA-Public Use
  Company Number: None

PATIENT
  Age: 11 Year
  Sex: Female

DRUGS (2)
  1. LAMICTAL [Suspect]
     Active Substance: LAMOTRIGINE
     Indication: EPILEPSY
     Dosage: 2 QAM G-TUBE?3 QPM G-TUBE
  2. LAMICTAL [Suspect]
     Active Substance: LAMOTRIGINE
     Indication: CHEST PAIN
     Dosage: 2 QAM G-TUBE?3 QPM G-TUBE

REACTIONS (2)
  - Convulsion [None]
  - Drug level fluctuating [None]

NARRATIVE: CASE EVENT DATE: 20080605
